FAERS Safety Report 4691206-5 (Version None)
Quarter: 2005Q2

REPORT INFORMATION
  Report Type: 
  Country: None (occurrence: None)
  Receive Date: 20050614
  Receipt Date: 20050531
  Transmission Date: 20051028
  Serious: Yes (Death, Hospitalization)
  Sender: FDA-Public Use
  Company Number: 2005082632

PATIENT
  Age: 68 Year
  Sex: Male

DRUGS (22)
  1. DIFLUCAN [Suspect]
     Indication: SYSTEMIC MYCOSIS
     Dosage: 200 MG (DAILY) ORAL
     Route: 048
     Dates: start: 20050323, end: 20050408
  2. ATENOLOL [Suspect]
     Indication: ANGINA UNSTABLE
     Dosage: 25 MG (DAILY) ORAL
     Route: 048
     Dates: start: 20041224, end: 20050408
  3. ASPIRIN [Suspect]
     Indication: ANGINA PECTORIS
     Dosage: 100 MG (DAILY), ORAL
     Route: 048
     Dates: start: 20041224, end: 20050408
  4. ALLOPURINOL [Suspect]
     Indication: HYPERURICAEMIA
     Dosage: 100 MG (DAILY), ORAL
     Route: 048
     Dates: start: 20041224, end: 20050408
  5. NEORAL [Suspect]
     Indication: NEPHROTIC SYNDROME
     Dosage: 150 MG (DAILY), ORAL
     Route: 048
     Dates: start: 20050205, end: 20050407
  6. NEORAL [Suspect]
     Indication: NEPHROTIC SYNDROME
     Dosage: 150 MG (DAILY), ORAL
     Route: 048
     Dates: start: 20050220, end: 20050408
  7. PERSANTIN [Suspect]
     Indication: PROTEINURIA
     Dosage: 300 MG (DAILY), ORAL
     Route: 048
     Dates: start: 20041224, end: 20050408
  8. DOXAZOSIN ^ALTER^ (DOXAZOSIN MESILATE) [Suspect]
     Indication: SYSTEMIC MYCOSIS
     Dosage: SEE IMAGE
     Route: 042
     Dates: start: 20050301, end: 20050310
  9. DOXAZOSIN ^ALTER^ (DOXAZOSIN MESILATE) [Suspect]
     Indication: SYSTEMIC MYCOSIS
     Dosage: SEE IMAGE
     Route: 042
     Dates: start: 20050311, end: 20050323
  10. DOXAZOSIN ^ALTER^ (DOXAZOSIN MESILATE) [Suspect]
     Indication: SYSTEMIC MYCOSIS
     Dosage: SEE IMAGE
     Route: 042
     Dates: start: 20050408
  11. LOCHOL (FLUVASTATIN SODIUM) [Suspect]
     Indication: HYPERCHOLESTEROLAEMIA
     Dosage: 30 MG (DAILY), ORAL
     Route: 048
     Dates: start: 20050125, end: 20050408
  12. LASIX [Suspect]
     Indication: RENAL FAILURE
     Dosage: 80 MG (DAILY), INTRAVENOUS
     Route: 042
     Dates: start: 20041224, end: 20050408
  13. NU LOTAN (LOSARTAN POTASSIUM) [Suspect]
     Indication: PROTEINURIA
     Dosage: 50 MG (DAILY), ORAL
     Route: 048
     Dates: start: 20041224, end: 20050408
  14. SIGMART (NICORANDIL) [Suspect]
     Indication: ANGINA UNSTABLE
     Dosage: SEE IMAGE
     Route: 048
     Dates: start: 20050309, end: 20050408
  15. SIGMART (NICORANDIL) [Suspect]
     Indication: ANGINA UNSTABLE
     Dosage: SEE IMAGE
     Route: 048
     Dates: start: 20050408, end: 20050412
  16. ALTAT (ROXATIDINE ACETATE HYDRCHLORIDE) [Suspect]
     Indication: PROPHYLAXIS AGAINST GASTROINTESTINAL ULCER
     Dosage: SEE IMAGE
     Dates: start: 20041228, end: 20050413
  17. ALTAT (ROXATIDINE ACETATE HYDRCHLORIDE) [Suspect]
     Indication: PROPHYLAXIS AGAINST GASTROINTESTINAL ULCER
     Dosage: SEE IMAGE
     Dates: start: 20050414, end: 20050418
  18. ALDACTONE [Suspect]
     Indication: RENAL FAILURE
     Dosage: 75 MG (DAILY), ORAL
     Route: 048
     Dates: start: 20041224, end: 20050408
  19. TICLOPIDINE HCL [Suspect]
     Indication: ANGINA UNSTABLE
     Dosage: 200 MG (DAILY), ORAL
     Route: 048
     Dates: start: 20050307, end: 20050408
  20. MUCOSTA (REBAMIPIDE) [Concomitant]
  21. PRERAN (TRANDOLAPRIL) [Concomitant]
  22. PREDNISOLONE [Concomitant]

REACTIONS (15)
  - BLOOD PRESSURE SYSTOLIC INCREASED [None]
  - DIARRHOEA [None]
  - DRUG INEFFECTIVE [None]
  - DRUG LEVEL INCREASED [None]
  - HAEMODIALYSIS [None]
  - HYPOXIA [None]
  - INFECTION [None]
  - NEPHRITIS [None]
  - OEDEMA PERIPHERAL [None]
  - PNEUMONIA [None]
  - PURPURA [None]
  - SCROTAL ULCER [None]
  - SEPTIC SHOCK [None]
  - URINE OUTPUT DECREASED [None]
  - WHITE BLOOD CELL COUNT DECREASED [None]
